FAERS Safety Report 5761562-5 (Version None)
Quarter: 2008Q2

REPORT INFORMATION
  Report Type: 
  Country: None (occurrence: None)
  Receive Date: 20080606
  Receipt Date: 20080528
  Transmission Date: 20081010
  Serious: Yes (Other)
  Sender: FDA-Public Use
  Company Number: US-PFIZER INC-2008045600

PATIENT

DRUGS (3)
  1. CAMPTOSAR [Suspect]
  2. CETUXIMAB [Concomitant]
  3. CAPECITABINE [Concomitant]

REACTIONS (1)
  - TONGUE DISORDER [None]
